FAERS Safety Report 15323420 (Version 2)
Quarter: 2019Q1

REPORT INFORMATION
  Report Type: Spontaneous
  Country: US (occurrence: US)
  Receive Date: 20180827
  Receipt Date: 20190130
  Transmission Date: 20190417
  Serious: No
  Sender: FDA-Public Use
  Company Number: US-SA-2018SA234801

PATIENT
  Sex: Female

DRUGS (11)
  1. NYSTATIN. [Suspect]
     Active Substance: NYSTATIN
     Dosage: UNK UNK, UNK
     Route: 065
  2. ACETAZOLAMIDE. [Suspect]
     Active Substance: ACETAZOLAMIDE
     Dosage: UNK UNK, UNK
     Route: 065
  3. MEPERIDINE HCL [Suspect]
     Active Substance: MEPERIDINE HYDROCHLORIDE
     Dosage: UNK UNK, UNK
     Route: 065
  4. MULTAQ [Suspect]
     Active Substance: DRONEDARONE
     Indication: CARDIOVASCULAR DISORDER
     Dosage: UNK UNK, UNK
     Route: 065
  5. NITROFURANTOIN. [Suspect]
     Active Substance: NITROFURANTOIN
     Dosage: UNK UNK, UNK
     Route: 065
  6. SULFAMETHOXAZOLE/TRIMETHOPRIM [Suspect]
     Active Substance: SULFAMETHOXAZOLE\TRIMETHOPRIM
     Dosage: UNK UNK, UNK
     Route: 065
  7. CIPROFLOXACIN HYDROCHLORIDE. [Suspect]
     Active Substance: CIPROFLOXACIN HYDROCHLORIDE
     Dosage: UNK UNK, UNK
     Route: 065
  8. TRAZODONE HYDROCHLORIDE. [Suspect]
     Active Substance: TRAZODONE HYDROCHLORIDE
     Dosage: UNK UNK, UNK
     Route: 065
  9. POVIDONE-IODINE. [Suspect]
     Active Substance: POVIDONE-IODINE
     Dosage: UNK UNK, UNK
     Route: 065
  10. DONNATAB [Suspect]
     Active Substance: ATROPINE SULFATE\HYOSCYAMINE SULFATE\SCOPOLAMINE HYDROBROMIDE
     Dosage: UNK UNK, UNK
     Route: 065
  11. SULFACETAMIDE SODIUM/SULFUR [Suspect]
     Active Substance: SULFACETAMIDE SODIUM\SULFUR
     Dosage: UNK UNK, UNK
     Route: 065

REACTIONS (10)
  - Palpitations [Unknown]
  - Urticaria [Unknown]
  - Drug hypersensitivity [Unknown]
  - Pruritus [Unknown]
  - Gastrointestinal disorder [Unknown]
  - Hypertension [Unknown]
  - Vomiting [Unknown]
  - Rash [Unknown]
  - Tachycardia [Unknown]
  - Abdominal pain upper [Unknown]
